FAERS Safety Report 19937631 (Version 1)
Quarter: 2021Q4

REPORT INFORMATION
  Report Type: Report from Study
  Country: None (occurrence: US)
  Receive Date: 20211011
  Receipt Date: 20211011
  Transmission Date: 20220303
  Serious: Yes (Hospitalization, Other)
  Sender: FDA-Public Use
  Company Number: US-ABBVIE-21K-163-4112063-00

PATIENT
  Age: 57 Year
  Sex: Female

DRUGS (2)
  1. HUMIRA [Suspect]
     Active Substance: ADALIMUMAB
     Indication: Psoriatic arthropathy
     Route: 058
  2. HUMIRA [Suspect]
     Active Substance: ADALIMUMAB
     Indication: Rheumatoid arthritis

REACTIONS (7)
  - Aortic aneurysm [Unknown]
  - Hospitalisation [Recovered/Resolved]
  - Faeces discoloured [Unknown]
  - Asthenia [Unknown]
  - Feeling abnormal [Unknown]
  - Disorientation [Unknown]
  - Fall [Unknown]

NARRATIVE: CASE EVENT DATE: 20211005
